FAERS Safety Report 6246424-1 (Version None)
Quarter: 2009Q2

REPORT INFORMATION
  Report Type: 
  Country: None (occurrence: None)
  Receive Date: 20090624
  Receipt Date: 20090624
  Transmission Date: 20091009
  Serious: No
  Sender: FDA-Public Use
  Company Number: None

PATIENT
  Age: 54 Year
  Sex: Female
  Weight: 61.2356 kg

DRUGS (2)
  1. EFFEXOR [Suspect]
     Indication: DEPRESSION
     Dosage: ONE PILL PER DAY PO
     Route: 048
     Dates: start: 20061101, end: 20090501
  2. EFFEXOR [Suspect]
     Indication: HOT FLUSH
     Dosage: ONE PILL PER DAY PO
     Route: 048
     Dates: start: 20061101, end: 20090501

REACTIONS (9)
  - BALANCE DISORDER [None]
  - CHILLS [None]
  - DIZZINESS [None]
  - FATIGUE [None]
  - INFLUENZA LIKE ILLNESS [None]
  - INSOMNIA [None]
  - PAIN [None]
  - PARAESTHESIA [None]
  - WITHDRAWAL SYNDROME [None]
